FAERS Safety Report 19931083 (Version 1)
Quarter: 2021Q4

REPORT INFORMATION
  Report Type: Spontaneous
  Country: US (occurrence: US)
  Receive Date: 20211008
  Receipt Date: 20211008
  Transmission Date: 20220303
  Serious: Yes (Other)
  Sender: FDA-Public Use
  Company Number: US-JNJFOC-20210950696

PATIENT

DRUGS (1)
  1. NEUTROGENA RAPID CLEAR ACNE ELIMINATING [Suspect]
     Active Substance: SALICYLIC ACID
     Indication: Acne
     Route: 061

REACTIONS (1)
  - Third degree chemical burn of skin [Unknown]
